FAERS Safety Report 23051319 (Version 1)
Quarter: 2023Q4

REPORT INFORMATION
  Report Type: Spontaneous
  Country: US (occurrence: None)
  Receive Date: 20231009
  Receipt Date: 20231009
  Transmission Date: 20240110
  Serious: Yes (Other)
  Sender: FDA-Public Use
  Company Number: None

PATIENT
  Age: 36 Year
  Sex: Female
  Weight: 198.9 kg

DRUGS (8)
  1. OZEMPIC [Suspect]
     Active Substance: SEMAGLUTIDE
     Indication: Glucose tolerance impaired
     Dates: start: 20230901, end: 20230922
  2. ZOLOFT [Concomitant]
     Active Substance: SERTRALINE HYDROCHLORIDE
  3. NATAZIA [Concomitant]
     Active Substance: DIENOGEST\ESTRADIOL VALERATE
  4. MELOXICAM [Concomitant]
     Active Substance: MELOXICAM
  5. Azelastine/Flucticasone spray [Concomitant]
  6. Women^s multivitamin [Concomitant]
  7. IRON [Concomitant]
     Active Substance: IRON
  8. probiotic gummy [Concomitant]

REACTIONS (6)
  - Depression [None]
  - Anxiety [None]
  - Feeling abnormal [None]
  - Self-injurious ideation [None]
  - Nausea [None]
  - Suicidal ideation [None]

NARRATIVE: CASE EVENT DATE: 20230925
